FAERS Safety Report 21066117 (Version 1)
Quarter: 2022Q3

REPORT INFORMATION
  Report Type: Spontaneous
  Country: US (occurrence: US)
  Receive Date: 20220711
  Receipt Date: 20220711
  Transmission Date: 20221027
  Serious: No
  Sender: FDA-Public Use
  Company Number: US-INTRA-CELLULAR THERAPIES, INC.-2022ICT00441

PATIENT
  Age: 56 Year
  Sex: Female
  Weight: 65.079 kg

DRUGS (3)
  1. CAPLYTA [Suspect]
     Active Substance: LUMATEPERONE
     Indication: Bipolar disorder
     Dosage: 42 MG, 1X/DAY
     Route: 048
     Dates: start: 20220419, end: 202204
  2. TRILEPTAL [Concomitant]
     Active Substance: OXCARBAZEPINE
  3. ATIVAN [Concomitant]
     Active Substance: LORAZEPAM
     Dosage: UNK, OCCASIONALLY/ INFREQUENTLY

REACTIONS (2)
  - Dyspnoea [Recovered/Resolved]
  - Tachycardia [Recovered/Resolved]

NARRATIVE: CASE EVENT DATE: 20220401
